FAERS Safety Report 6087185-9 (Version None)
Quarter: 2009Q1

REPORT INFORMATION
  Report Type: 
  Country: None (occurrence: None)
  Receive Date: 20090223
  Receipt Date: 20090212
  Transmission Date: 20090719
  Serious: Yes (Life-Threatening, Hospitalization)
  Sender: FDA-Public Use
  Company Number: US-MERCK-0902USA00838

PATIENT
  Age: 74 Year
  Sex: Female
  Weight: 58 kg

DRUGS (4)
  1. FOSAMAX [Suspect]
     Indication: OSTEOPOROSIS
     Route: 048
     Dates: start: 20080915
  2. FOSAMAX [Suspect]
     Route: 048
     Dates: start: 20080908
  3. FOSAMAX [Suspect]
     Route: 048
     Dates: start: 20080901
  4. FOSAMAX [Suspect]
     Route: 048
     Dates: start: 20080825

REACTIONS (3)
  - BACK PAIN [None]
  - MOBILITY DECREASED [None]
  - PAIN IN EXTREMITY [None]
